FAERS Safety Report 7242526-1 (Version None)
Quarter: 2010Q4

REPORT INFORMATION
  Report Type: 
  Country: None (occurrence: None)
  Receive Date: 20101130
  Receipt Date: 20090921
  Transmission Date: 20110411
  Serious: Yes (Hospitalization, Other)
  Sender: FDA-Public Use
  Company Number: 2009-199672-NL

PATIENT
  Age: 44 Year
  Sex: Female

DRUGS (9)
  1. NUVARING [Suspect]
     Indication: MENORRHAGIA
     Dosage: VAG
     Route: 067
     Dates: start: 20040201, end: 20070113
  2. SYNTHROID [Concomitant]
  3. TRICOR [Concomitant]
  4. METFORMIN [Concomitant]
  5. ASPIRIN [Concomitant]
  6. AVANDAMET [Concomitant]
  7. ADVICOR [Concomitant]
  8. LOFIBRA [Concomitant]
  9. LEVOTHYROXINE [Concomitant]

REACTIONS (3)
  - DEEP VEIN THROMBOSIS [None]
  - PULMONARY EMBOLISM [None]
  - THROMBOPHLEBITIS SUPERFICIAL [None]
